FAERS Safety Report 7690518-0 (Version None)
Quarter: 2011Q3

REPORT INFORMATION
  Report Type: 
  Country: None (occurrence: None)
  Receive Date: 20110818
  Receipt Date: 20110811
  Transmission Date: 20111222
  Serious: Yes (Other)
  Sender: FDA-Public Use
  Company Number: BR-PFIZER INC-2011185721

PATIENT
  Age: 73 Year
  Sex: Female
  Weight: 117 kg

DRUGS (8)
  1. DEXACITONEURIN [Concomitant]
     Indication: SPINAL DISORDER
     Dosage: UNK
     Route: 030
  2. BETAMETHASONE DIPROPIONATE/BETAMETHASONE SODIUM PHOSPHATE [Concomitant]
     Indication: SPINAL DISORDER
     Dosage: UNK
     Route: 030
  3. LOSARTAN POTASSIUM [Concomitant]
     Indication: HYPERTENSION
     Dosage: 50 MG, 2X/DAY
     Dates: start: 20110201
  4. CELEBREX [Suspect]
     Indication: INTERVERTEBRAL DISC PROTRUSION
  5. ALENIA [Concomitant]
     Indication: CHRONIC OBSTRUCTIVE PULMONARY DISEASE
     Dosage: [BUDESONIDE 400UG]/ [FORMOTEROL FUMARATE 12MG], TWICE DAILY
     Dates: start: 20110201
  6. SIMVASTATIN [Concomitant]
     Indication: GASTROINTESTINAL MOTILITY DISORDER
     Dosage: 20 MG, ONCE AT NIGHT
     Dates: start: 20110401
  7. CELEBREX [Suspect]
     Indication: SPINAL DISORDER
     Dosage: 2 TABLETS OF 200MG DAILY
     Route: 048
     Dates: start: 20110701
  8. SERTRALINE HYDROCHLORIDE [Concomitant]
     Indication: DEPRESSION
     Dosage: 50 MG, 1X/DAY
     Dates: start: 20110801

REACTIONS (2)
  - HYPOTENSION [None]
  - HYPERHIDROSIS [None]
